FAERS Safety Report 11120666 (Version 3)
Quarter: 2015Q2

REPORT INFORMATION
  Report Type: Report from Study
  Country: SI (occurrence: SI)
  Receive Date: 20150519
  Receipt Date: 20150608
  Transmission Date: 20150821
  Serious: Yes (Hospitalization, Other)
  Sender: FDA-Public Use
  Company Number: SI-BAYER-2015-034613

PATIENT
  Age: 68 Year
  Sex: Male

DRUGS (2)
  1. NEXAVAR [Suspect]
     Active Substance: SORAFENIB
     Indication: HEPATOCELLULAR CARCINOMA
     Dosage: DAILY DOSE 200 MG
     Route: 048
  2. PROPRANOLOL [Concomitant]
     Active Substance: PROPRANOLOL\PROPRANOLOL HYDROCHLORIDE
     Dosage: 20 MG, BID

REACTIONS (7)
  - Metastases to abdominal cavity [None]
  - Metastases to thorax [None]
  - Oropharyngeal pain [None]
  - Ascites [None]
  - Anaemia [Recovered/Resolved]
  - Disease progression [None]
  - Vertigo [None]

NARRATIVE: CASE EVENT DATE: 201409
